FAERS Safety Report 17272477 (Version 1)
Quarter: 2020Q1

REPORT INFORMATION
  Report Type: Spontaneous
  Country: US (occurrence: US)
  Receive Date: 20200114
  Receipt Date: 20200114
  Transmission Date: 20200409
  Serious: No
  Sender: FDA-Public Use
  Company Number: None

PATIENT
  Age: 57 Year
  Sex: Female
  Weight: 72 kg

DRUGS (3)
  1. GLUCOSAMINE [Concomitant]
     Active Substance: GLUCOSAMINE
  2. COQ 10 [Concomitant]
     Active Substance: UBIDECARENONE
  3. XIIDRA [Suspect]
     Active Substance: LIFITEGRAST
     Indication: DRY EYE
     Dosage: ?          QUANTITY:60 SINGLE USE TUBE;?
     Route: 047

REACTIONS (3)
  - Throat irritation [None]
  - Gastrooesophageal reflux disease [None]
  - Oropharyngeal pain [None]

NARRATIVE: CASE EVENT DATE: 20191026
